FAERS Safety Report 12948164 (Version 1)
Quarter: 2016Q4

REPORT INFORMATION
  Report Type: Spontaneous
  Country: US (occurrence: US)
  Receive Date: 20161116
  Receipt Date: 20161116
  Transmission Date: 20170207
  Serious: Yes (Hospitalization)
  Sender: FDA-Public Use
  Company Number: US-PFIZER INC-2016530660

PATIENT
  Age: 52 Year
  Sex: Female
  Weight: 99 kg

DRUGS (2)
  1. LYRICA [Suspect]
     Active Substance: PREGABALIN
     Indication: FIBROMYALGIA
     Dosage: 300 MG, 2X/DAY
     Route: 048
  2. LYRICA [Suspect]
     Active Substance: PREGABALIN
     Dosage: 300 MG, 4X/DAY
     Route: 048

REACTIONS (4)
  - Chest pain [Recovering/Resolving]
  - Condition aggravated [Unknown]
  - Prescribed overdose [Unknown]
  - Fibromyalgia [Unknown]
